FAERS Safety Report 7267652-2 (Version None)
Quarter: 2011Q1

REPORT INFORMATION
  Report Type: 
  Country: None (occurrence: None)
  Receive Date: 20110201
  Receipt Date: 20110126
  Transmission Date: 20110831
  Serious: Yes (Hospitalization, Other)
  Sender: FDA-Public Use
  Company Number: US-ABBOTT-11P-163-0701116-00

PATIENT
  Age: 43 Year
  Sex: Female

DRUGS (5)
  1. ARIXTRA [Concomitant]
     Indication: PRODUCT USED FOR UNKNOWN INDICATION
     Dosage: 10 MG DAILY
  2. TRAMADOL HCL [Concomitant]
     Indication: PAIN
  3. NEURONTIN [Concomitant]
     Indication: PRODUCT USED FOR UNKNOWN INDICATION
  4. UNKNOWN BETA BLOCKER [Concomitant]
     Indication: PRODUCT USED FOR UNKNOWN INDICATION
  5. HUMIRA [Suspect]
     Indication: CROHN'S DISEASE
     Dates: start: 20100601, end: 20101229

REACTIONS (5)
  - THROMBOSIS [None]
  - PYREXIA [None]
  - TACHYCARDIA [None]
  - MULTIPLE SCLEROSIS [None]
  - CROHN'S DISEASE [None]
